FAERS Safety Report 9215752 (Version 1)
Quarter: 2013Q2

REPORT INFORMATION
  Report Type: Spontaneous
  Country: US (occurrence: None)
  Receive Date: 20130404
  Receipt Date: 20130404
  Transmission Date: 20140414
  Serious: Yes (Death, Hospitalization)
  Sender: FDA-Public Use
  Company Number: 2013SGN00182

PATIENT
  Age: 48 Year
  Sex: Male

DRUGS (1)
  1. ADCETRIS (BRENTUXIMAB VEDOTIN) INJECTION [Suspect]
     Indication: PLASMABLASTIC LYMPHOMA

REACTIONS (4)
  - Upper gastrointestinal haemorrhage [None]
  - Tumour lysis syndrome [None]
  - Off label use [None]
  - Disease recurrence [None]
